FAERS Safety Report 9105179 (Version 1)
Quarter: 2013Q1

REPORT INFORMATION
  Report Type: Spontaneous
  Country: CA (occurrence: CA)
  Receive Date: 20130220
  Receipt Date: 20130220
  Transmission Date: 20140127
  Serious: Yes (Other)
  Sender: FDA-Public Use
  Company Number: CA-PFIZER INC-2013061469

PATIENT
  Sex: 0

DRUGS (1)
  1. CYKLOKAPRON [Suspect]
     Dosage: UNK

REACTIONS (1)
  - Anaphylactic reaction [Unknown]
